FAERS Safety Report 7166292-3 (Version None)
Quarter: 2010Q4

REPORT INFORMATION
  Report Type: 
  Country: None (occurrence: None)
  Receive Date: 20101216
  Receipt Date: 20101207
  Transmission Date: 20110411
  Serious: Yes (Hospitalization, Other)
  Sender: FDA-Public Use
  Company Number: IS-PFIZER INC-2010167670

PATIENT
  Sex: Female

DRUGS (15)
  1. SERTRALINE HYDROCHLORIDE [Suspect]
     Indication: DEPRESSION
     Dosage: 100 MG, UNK
  2. MODAFINIL [Interacting]
     Indication: HYPERVIGILANCE
     Dosage: 400 MG, UNK
  3. LEVOMEPROMAZINE [Interacting]
     Indication: SLEEP DISORDER
     Dosage: 50 MG, UNK
  4. DULOXETIME HYDROCHLORIDE [Interacting]
     Indication: DEPRESSION
     Dosage: 30 MG, UNK
  5. METHYLPHENIDATE [Interacting]
     Indication: ATTENTION DEFICIT/HYPERACTIVITY DISORDER
     Dosage: 54 MG, UNK
  6. CLOMIPRAMINE HCL [Interacting]
     Indication: DEPRESSION
     Dosage: 75 MG, 2X/DAY
  7. TRAMADOL HCL [Interacting]
  8. METFORMIN [Concomitant]
     Dosage: 500 MG, UNK
  9. RABEPRAZOLE [Concomitant]
     Dosage: 20 MG, UNK
  10. METOPROLOL [Concomitant]
     Dosage: 23.75 MG, UNK
  11. ATORVASTATIN [Concomitant]
     Dosage: 20 MG, UNK
  12. LEVOTHYROXINE [Concomitant]
     Dosage: 150 UG, UNK
  13. MAGNESIUM [Concomitant]
     Dosage: 250 MG, UNK
  14. VITAMIN D [Concomitant]
  15. CODEINE PHOSPHATE AND ACETAMINOPHEN [Concomitant]

REACTIONS (2)
  - DRUG INTERACTION [None]
  - SEROTONIN SYNDROME [None]
